FAERS Safety Report 12186991 (Version 1)
Quarter: 2016Q1

REPORT INFORMATION
  Report Type: Spontaneous
  Country: VE (occurrence: VE)
  Receive Date: 20160317
  Receipt Date: 20160317
  Transmission Date: 20160526
  Serious: Yes (Hospitalization, Other)
  Sender: FDA-Public Use
  Company Number: PHHY2016VE035392

PATIENT
  Age: 44 Year
  Sex: Female

DRUGS (2)
  1. FORADIL [Suspect]
     Active Substance: FORMOTEROL FUMARATE
     Indication: RESPIRATORY TRACT INFECTION
     Dosage: 24 UG, QD
     Route: 065
  2. MIFLONIDE [Suspect]
     Active Substance: BUDESONIDE
     Indication: RESPIRATORY TRACT INFECTION
     Dosage: 800 UG, QD
     Route: 065

REACTIONS (6)
  - Product use issue [Unknown]
  - Respiratory tract infection [Unknown]
  - Asphyxia [Unknown]
  - Malaise [Unknown]
  - Lung infection [Unknown]
  - Condition aggravated [Unknown]

NARRATIVE: CASE EVENT DATE: 2014
